FAERS Safety Report 8889847 (Version 1)
Quarter: 2012Q4

REPORT INFORMATION
  Report Type: 
  Country: US (occurrence: US)
  Receive Date: 20121107
  Receipt Date: 20121107
  Transmission Date: 20130627
  Serious: No
  Sender: FDA-Public Use
  Company Number: US-009507513-1210USA013106

PATIENT

DRUGS (2)
  1. PRIMAXIN I.V. [Suspect]
     Route: 042
  2. INVANZ [Suspect]

REACTIONS (1)
  - Drug resistance [Unknown]
